FAERS Safety Report 5217290-8 (Version None)
Quarter: 2007Q1

REPORT INFORMATION
  Report Type: 
  Country: None (occurrence: None)
  Receive Date: 20070124
  Receipt Date: 20051220
  Transmission Date: 20070707
  Serious: No
  Sender: FDA-Public Use
  Company Number: US-GLAXOSMITHKLINE-A0586463A

PATIENT
  Sex: Male

DRUGS (1)
  1. PAXIL CR [Suspect]
     Indication: DRUG USE FOR UNKNOWN INDICATION
     Dosage: 150MG IN THE MORNING
     Route: 048
     Dates: start: 20051220

REACTIONS (2)
  - ACCIDENTAL OVERDOSE [None]
  - STOMACH DISCOMFORT [None]
